FAERS Safety Report 4844623-4 (Version None)
Quarter: 2005Q4

REPORT INFORMATION
  Report Type: 
  Country: None (occurrence: None)
  Receive Date: 20051125
  Receipt Date: 20051118
  Transmission Date: 20060501
  Serious: Yes (Disabling)
  Sender: FDA-Public Use
  Company Number: HQWYE491915SEP05

PATIENT
  Age: 55 Year
  Sex: Male

DRUGS (6)
  1. PANTOZOL                      (PANTOPRAZOLE ) [Suspect]
     Indication: GASTROINTESTINAL HAEMORRHAGE
     Dosage: 40 MG ONCE TO TWICE DAILY, ORAL
     Route: 048
     Dates: start: 19990101, end: 20050101
  2. PANTOZOL                      (PANTOPRAZOLE ) [Suspect]
     Indication: GASTROOESOPHAGEAL REFLUX DISEASE
     Dosage: 40 MG ONCE TO TWICE DAILY, ORAL
     Route: 048
     Dates: start: 19990101, end: 20050101
  3. ASPIRIN [Concomitant]
  4. CONCOR           (BISOPROLOL) [Concomitant]
  5. LOCOL          (FLUVASTATIN SODIUM) [Concomitant]
  6. XANEF          (ENALAPRIL MALEATE) [Concomitant]

REACTIONS (3)
  - GASTROINTESTINAL HAEMORRHAGE [None]
  - IMPAIRED GASTRIC EMPTYING [None]
  - MYELODYSPLASTIC SYNDROME [None]
